FAERS Safety Report 10006830 (Version 1)
Quarter: 2014Q1

REPORT INFORMATION
  Report Type: Spontaneous
  Country: US (occurrence: US)
  Receive Date: 20140313
  Receipt Date: 20140313
  Transmission Date: 20141002
  Serious: No
  Sender: FDA-Public Use
  Company Number: US-SHIRE-US201400106

PATIENT
  Sex: 0

DRUGS (1)
  1. LIALDA [Suspect]
     Indication: PRODUCT USED FOR UNKNOWN INDICATION
     Dosage: 2.4 G, OTHER (2 TABLETS PER DAY)
     Route: 048
     Dates: start: 2014

REACTIONS (3)
  - Headache [Unknown]
  - Dizziness [Unknown]
  - Incorrect dosage administered [Not Recovered/Not Resolved]
